FAERS Safety Report 12632385 (Version 2)
Quarter: 2016Q3

REPORT INFORMATION
  Report Type: Spontaneous
  Country: US (occurrence: US)
  Receive Date: 20160808
  Receipt Date: 20160808
  Transmission Date: 20161109
  Serious: No
  Sender: FDA-Public Use
  Company Number: US-BEH-2016062686

PATIENT
  Age: 79 Year
  Sex: Female
  Weight: 65 kg

DRUGS (12)
  1. SERTRALINE [Concomitant]
     Active Substance: SERTRALINE HYDROCHLORIDE
  2. ASPIRIN. [Concomitant]
     Active Substance: ASPIRIN
  3. DIPHENHYDRAMINE. [Concomitant]
     Active Substance: DIPHENHYDRAMINE
  4. ALEVE [Concomitant]
     Active Substance: NAPROXEN SODIUM
  5. ZETIA [Concomitant]
     Active Substance: EZETIMIBE
  6. HIZENTRA [Suspect]
     Active Substance: HUMAN IMMUNOGLOBULIN G
     Indication: IMMUNODEFICIENCY COMMON VARIABLE
     Route: 058
  7. LIDOCAINE/PRILOCAINE [Concomitant]
     Active Substance: LIDOCAINE\PRILOCAINE
  8. RAMIPRIL. [Concomitant]
     Active Substance: RAMIPRIL
  9. CLONAZEPAM. [Concomitant]
     Active Substance: CLONAZEPAM
  10. LANSOPRAZOLE. [Concomitant]
     Active Substance: LANSOPRAZOLE
  11. VITAMIN D [Concomitant]
     Active Substance: CHOLECALCIFEROL
  12. EPIPEN [Concomitant]
     Active Substance: EPINEPHRINE

REACTIONS (1)
  - Cystitis [Unknown]

NARRATIVE: CASE EVENT DATE: 20160303
